FAERS Safety Report 23365137 (Version 2)
Quarter: 2024Q1

REPORT INFORMATION
  Report Type: Spontaneous
  Country: US (occurrence: US)
  Receive Date: 20240104
  Receipt Date: 20240117
  Transmission Date: 20240410
  Serious: Yes (Death, Other)
  Sender: FDA-Public Use
  Company Number: US-SECURA BIO, INC.-2023-SECUR-US000125

PATIENT

DRUGS (1)
  1. COPIKTRA [Suspect]
     Active Substance: DUVELISIB
     Indication: Immune thrombocytopenia
     Dosage: 25 MG, BID
     Route: 048
     Dates: start: 202312

REACTIONS (5)
  - Death [Fatal]
  - Pneumonia [Unknown]
  - Immunosuppression [Unknown]
  - Nasopharyngitis [Unknown]
  - Product use in unapproved indication [Unknown]

NARRATIVE: CASE EVENT DATE: 20231225
